FAERS Safety Report 5122968-0 (Version None)
Quarter: 2006Q4

REPORT INFORMATION
  Report Type: 
  Country: None (occurrence: None)
  Receive Date: 20061009
  Receipt Date: 20060925
  Transmission Date: 20070319
  Serious: Yes (Other)
  Sender: FDA-Public Use
  Company Number: CH-ROCHE-464649

PATIENT
  Age: 43 Year
  Sex: Male
  Weight: 71 kg

DRUGS (3)
  1. PEG-INTERFERON ALFA 2A (RO 25-8310) [Suspect]
     Indication: HEPATITIS C
     Dosage: TAKEN 1DOSE FORM IN THE MORNING DATE OF LAST DOSE PRIOR TO SAE = 1 DECEMBER 2005
     Route: 058
     Dates: start: 20050106
  2. RIBAVIRIN [Suspect]
     Indication: HEPATITIS C
     Dosage: TAKEN TWO IN THE MORNING, NOTHING AT MIDDAY AND THEN 3 IN THE EVENING DATE OF LAST DOSE PRIOR TO SA+
     Route: 048
     Dates: start: 20050106
  3. ZOLPIDEM TARTRATE [Concomitant]
     Dates: start: 20050127

REACTIONS (1)
  - PORPHYRIA NON-ACUTE [None]
